FAERS Safety Report 15009642 (Version 2)
Quarter: 2018Q3

REPORT INFORMATION
  Report Type: Spontaneous
  Country: US (occurrence: US)
  Receive Date: 20180614
  Receipt Date: 20180702
  Transmission Date: 20181010
  Serious: Yes (Hospitalization, Other)
  Sender: FDA-Public Use
  Company Number: US-AUROBINDO-AUR-APL-2018-031476

PATIENT
  Age: 56 Year
  Sex: Female

DRUGS (6)
  1. LITHIUM. [Suspect]
     Active Substance: LITHIUM
     Dosage: 450 MILLIGRAM, ONCE A DAY, ONCE IN THE EVENING
     Route: 065
  2. LITHIUM. [Suspect]
     Active Substance: LITHIUM
     Dosage: 450 MILLIGRAM, 12 HOUR
     Route: 065
  3. ARIPIPRAZOLE. [Suspect]
     Active Substance: ARIPIPRAZOLE
     Indication: BIPOLAR DISORDER
     Route: 065
  4. QUETIAPINE. [Suspect]
     Active Substance: QUETIAPINE
     Indication: BIPOLAR DISORDER
     Dosage: UNK
     Route: 065
  5. LITHIUM. [Suspect]
     Active Substance: LITHIUM
     Indication: BIPOLAR DISORDER
     Dosage: 300 MG ONCE IN THE MORNING
     Route: 065
  6. ARIPIPRAZOLE. [Suspect]
     Active Substance: ARIPIPRAZOLE

REACTIONS (8)
  - Respiratory failure [Unknown]
  - Condition aggravated [Unknown]
  - Pulmonary hypertension [Unknown]
  - Cough [Unknown]
  - Weight increased [Unknown]
  - Sleep apnoea syndrome [Unknown]
  - Dyspnoea [Unknown]
  - Confusional state [Unknown]
